FAERS Safety Report 18651087 (Version 18)
Quarter: 2022Q3

REPORT INFORMATION
  Report Type: Spontaneous
  Country: CA (occurrence: CA)
  Receive Date: 20201223
  Receipt Date: 20220910
  Transmission Date: 20221026
  Serious: Yes (Hospitalization, Other)
  Sender: FDA-Public Use
  Company Number: CA-CELLTRION INC.-2020CA029367

PATIENT

DRUGS (27)
  1. INFLECTRA [Suspect]
     Active Substance: INFLIXIMAB-DYYB
     Indication: Colitis ulcerative
     Dosage: 310 MG, AT 0, 2, 6, THEN EVERY 8 WEEKS
     Route: 042
     Dates: start: 20200928, end: 20201103
  2. INFLECTRA [Suspect]
     Active Substance: INFLIXIMAB-DYYB
     Indication: Crohn^s disease
     Dosage: 310 MG, AT 0, 2, 6, THEN EVERY 8 WEEKS
     Route: 042
     Dates: start: 20200928
  3. INFLECTRA [Suspect]
     Active Substance: INFLIXIMAB-DYYB
     Dosage: 310 MG, AT 0, 2, 6, THEN EVERY 8 WEEKS
     Route: 042
     Dates: start: 20201103
  4. INFLECTRA [Suspect]
     Active Substance: INFLIXIMAB-DYYB
     Dosage: 360 MG 6 WEEKS, THEN EVERY 8 WEEKS
     Route: 042
     Dates: start: 20201215
  5. INFLECTRA [Suspect]
     Active Substance: INFLIXIMAB-DYYB
     Dosage: 360 MG 6 WEEKS, THEN EVERY 8 WEEKS
     Route: 042
     Dates: start: 20210202
  6. INFLECTRA [Suspect]
     Active Substance: INFLIXIMAB-DYYB
     Dosage: 360 MG 6 WEEKS, THEN EVERY 8 WEEKS
     Route: 042
     Dates: start: 20210420
  7. INFLECTRA [Suspect]
     Active Substance: INFLIXIMAB-DYYB
     Dosage: 360 MG 6 WEEKS, THEN EVERY 8 WEEKS
     Route: 042
     Dates: start: 20210601
  8. INFLECTRA [Suspect]
     Active Substance: INFLIXIMAB-DYYB
     Dosage: 360 MG 6 WEEKS, THEN EVERY 8 WEEKS
     Route: 042
     Dates: start: 20210601
  9. INFLECTRA [Suspect]
     Active Substance: INFLIXIMAB-DYYB
     Dosage: 360 MG 6 WEEKS, THEN EVERY 8 WEEKS
     Route: 042
     Dates: start: 20210727
  10. INFLECTRA [Suspect]
     Active Substance: INFLIXIMAB-DYYB
     Dosage: 360 MG 6 WEEKS, THEN EVERY 8 WEEKS
     Route: 042
     Dates: start: 20210922
  11. INFLECTRA [Suspect]
     Active Substance: INFLIXIMAB-DYYB
     Dosage: 360 MG 6 WEEKS, THEN EVERY 8 WEEKS
     Route: 042
     Dates: start: 20211118
  12. INFLECTRA [Suspect]
     Active Substance: INFLIXIMAB-DYYB
     Dosage: 360 MG 6 WEEKS, THEN EVERY 8 WEEKS
     Route: 042
     Dates: start: 20220303
  13. INFLECTRA [Suspect]
     Active Substance: INFLIXIMAB-DYYB
     Dosage: 360 MG Q 6 WEEKS, THEN EVERY 8 WEEKS
     Route: 042
     Dates: start: 20220428
  14. INFLECTRA [Suspect]
     Active Substance: INFLIXIMAB-DYYB
     Dosage: 360 MG Q 6 WEEKS, THEN EVERY 8 WEEKS
     Route: 042
     Dates: start: 20220623
  15. BUSPIRONE [Concomitant]
     Active Substance: BUSPIRONE HYDROCHLORIDE
     Dosage: UNK
     Route: 065
  16. BUSPIRONE [Concomitant]
     Active Substance: BUSPIRONE HYDROCHLORIDE
     Dosage: 1 DF(DOSAGE IS UNKNOWN)
     Route: 065
  17. CYCLOSPORINE [Concomitant]
     Active Substance: CYCLOSPORINE
     Dosage: UNK
     Route: 065
  18. CYCLOSPORINE [Concomitant]
     Active Substance: CYCLOSPORINE
     Dosage: 1 DF (DOSAGE IS UNKNOWN)
     Route: 065
  19. ENTYVIO [Concomitant]
     Active Substance: VEDOLIZUMAB
     Dosage: 1 DF(DOSAGE IS UNKNOWN)
     Route: 065
     Dates: start: 202008
  20. MORPHINE [Concomitant]
     Active Substance: MORPHINE
     Dosage: 30 MG (SLOW-RELEASE), 2X/DAY
     Route: 065
  21. NORTRIPTYLINE [Concomitant]
     Active Substance: NORTRIPTYLINE
     Dosage: UNK
     Route: 065
  22. NORTRIPTYLINE [Concomitant]
     Active Substance: NORTRIPTYLINE
     Dosage: 1 DF (DOSAGE IS UNKNOWN)
     Route: 065
  23. SEROQUEL [Concomitant]
     Active Substance: QUETIAPINE FUMARATE
     Dosage: UNK
     Route: 065
  24. SEROQUEL [Concomitant]
     Active Substance: QUETIAPINE FUMARATE
     Dosage: 1 DF(DOSAGE IS UNKNOWN)
     Route: 065
  25. ZOLOFT [Concomitant]
     Active Substance: SERTRALINE HYDROCHLORIDE
     Dosage: UNK
     Route: 065
  26. ZOLOFT [Concomitant]
     Active Substance: SERTRALINE HYDROCHLORIDE
     Dosage: 1 DF
     Route: 065
  27. ZOLOFT [Concomitant]
     Active Substance: SERTRALINE HYDROCHLORIDE
     Dosage: 1 DF, (DOSAGE IS UNKNOWN)
     Route: 065

REACTIONS (39)
  - Clostridium difficile colitis [Unknown]
  - Pyoderma gangrenosum [Not Recovered/Not Resolved]
  - Condition aggravated [Not Recovered/Not Resolved]
  - Uveitis [Unknown]
  - Rectal abscess [Unknown]
  - Anal abscess [Not Recovered/Not Resolved]
  - Drug specific antibody present [Unknown]
  - Muscle spasms [Recovering/Resolving]
  - Cough [Not Recovered/Not Resolved]
  - Headache [Not Recovered/Not Resolved]
  - Rash [Not Recovered/Not Resolved]
  - Urticaria [Recovered/Resolved]
  - Pruritus [Recovered/Resolved]
  - Skin disorder [Unknown]
  - Weight increased [Not Recovered/Not Resolved]
  - Chills [Unknown]
  - Pyrexia [Unknown]
  - Nasopharyngitis [Unknown]
  - Body temperature decreased [Unknown]
  - Pain [Unknown]
  - Musculoskeletal stiffness [Recovering/Resolving]
  - Abdominal pain upper [Unknown]
  - Erythema nodosum [Unknown]
  - Aphthous ulcer [Unknown]
  - Diarrhoea [Unknown]
  - Abscess [Not Recovered/Not Resolved]
  - Malaise [Unknown]
  - Anal fissure [Not Recovered/Not Resolved]
  - Fistula [Not Recovered/Not Resolved]
  - Arthralgia [Unknown]
  - Joint swelling [Not Recovered/Not Resolved]
  - Fibromyalgia [Not Recovered/Not Resolved]
  - Myalgia [Recovering/Resolving]
  - Drug level decreased [Unknown]
  - Off label use [Unknown]
  - Off label use [Unknown]
  - Intentional product use issue [Unknown]
  - Inappropriate schedule of product administration [Unknown]
  - Incorrect dose administered [Unknown]

NARRATIVE: CASE EVENT DATE: 20200101
